FAERS Safety Report 20860383 (Version 1)
Quarter: 2022Q2

REPORT INFORMATION
  Report Type: Spontaneous
  Country: US (occurrence: None)
  Receive Date: 20220523
  Receipt Date: 20220523
  Transmission Date: 20220720
  Serious: Yes (Death, Hospitalization, Other)
  Sender: FDA-Public Use
  Company Number: US-NATCOUSA-2022-NATCOUSA-000043

PATIENT
  Age: 87 Year
  Sex: Male

DRUGS (3)
  1. AZACITIDINE [Suspect]
     Active Substance: AZACITIDINE
     Indication: White blood cell count decreased
     Route: 042
  2. VENETOCLAX [Suspect]
     Active Substance: VENETOCLAX
     Indication: White blood cell count decreased
  3. HYDROXYUREA [Concomitant]
     Active Substance: HYDROXYUREA
     Indication: Cytoreductive surgery

REACTIONS (5)
  - Febrile neutropenia [Fatal]
  - Cytopenia [Fatal]
  - Atrial fibrillation [Fatal]
  - Phlebitis [Fatal]
  - Acute myeloid leukaemia [Fatal]
